FAERS Safety Report 6539111-3 (Version None)
Quarter: 2010Q1

REPORT INFORMATION
  Report Type: 
  Country: None (occurrence: None)
  Receive Date: 20100108
  Receipt Date: 20091228
  Transmission Date: 20100710
  Serious: Yes (Hospitalization)
  Sender: FDA-Public Use
  Company Number: DSA_42293_2010

PATIENT
  Age: 63 Year
  Sex: Female

DRUGS (10)
  1. DILTIAZEM HYDROCHLORIDE [Suspect]
     Indication: DRUG USE FOR UNKNOWN INDICATION
     Dosage: (200 MG QD ORAL)
     Route: 048
     Dates: start: 20090216, end: 20090320
  2. MEDIATOR (MEDIATOR-BENFLUOREX HYDROCHLORIDE) (NOT SPECIFIED) [Suspect]
     Indication: DRUG USE FOR UNKNOWN INDICATION
     Dosage: (150 MG TID ORAL)
     Route: 048
     Dates: start: 20090216, end: 20090316
  3. TERCIAN /00759301/ [Concomitant]
  4. ANAFRANIL [Concomitant]
  5. PLAVIX [Concomitant]
  6. FLUTICASONE PROPIONATE [Concomitant]
  7. TIOTROPIUM BROMIDE [Concomitant]
  8. INEGY [Concomitant]
  9. LANSOPRAZOLE [Concomitant]
  10. ACETAMINOPHEN [Concomitant]

REACTIONS (4)
  - ACUTE GENERALISED EXANTHEMATOUS PUSTULOSIS [None]
  - BLOOD CREATININE INCREASED [None]
  - BURNING SENSATION [None]
  - PRURITUS [None]
